FAERS Safety Report 5530115-6 (Version None)
Quarter: 2007Q4

REPORT INFORMATION
  Report Type: 
  Country: None (occurrence: None)
  Receive Date: 20071130
  Receipt Date: 20071121
  Transmission Date: 20080405
  Serious: Yes (Hospitalization)
  Sender: FDA-Public Use
  Company Number: PHBS2007CA19782

PATIENT
  Age: 60 Year
  Sex: Female

DRUGS (6)
  1. PANTOPRAZOLE SODIUM [Concomitant]
  2. PREDNISONE TAB [Concomitant]
     Dosage: 5 MG/DAY
  3. LEVOTHYROXINE SODIUM [Concomitant]
  4. ASPIRIN [Concomitant]
  5. IRON SUPPLEMENTS [Concomitant]
  6. FAMCICLOVIR [Suspect]
     Indication: HERPES ZOSTER
     Dosage: 500 MG, Q8H

REACTIONS (13)
  - BLOOD CREATININE INCREASED [None]
  - BLOOD LACTATE DEHYDROGENASE INCREASED [None]
  - BLOOD PRESSURE INCREASED [None]
  - BODY TEMPERATURE INCREASED [None]
  - GLOMERULONEPHRITIS [None]
  - HAEMOGLOBIN DECREASED [None]
  - HEADACHE [None]
  - MELAENA [None]
  - PLATELET COUNT DECREASED [None]
  - RENAL TUBULAR DISORDER [None]
  - THROMBOTIC MICROANGIOPATHY [None]
  - THROMBOTIC THROMBOCYTOPENIC PURPURA [None]
  - VISUAL DISTURBANCE [None]
